FAERS Safety Report 19248717 (Version 1)
Quarter: 2021Q2

REPORT INFORMATION
  Report Type: Spontaneous
  Country: US (occurrence: US)
  Receive Date: 20210512
  Receipt Date: 20210512
  Transmission Date: 20210717
  Serious: No
  Sender: FDA-Public Use
  Company Number: US-UCBSA-2020031672

PATIENT
  Age: 45 Year
  Sex: Female

DRUGS (2)
  1. CIMZIA [Suspect]
     Active Substance: CERTOLIZUMAB PEGOL
     Indication: PSORIATIC ARTHROPATHY
  2. CIMZIA [Suspect]
     Active Substance: CERTOLIZUMAB PEGOL
     Indication: PSORIASIS
     Dosage: 200 MILLIGRAM, OTHER
     Route: 058
     Dates: start: 202003, end: 202008

REACTIONS (4)
  - Injection site swelling [Recovered/Resolved]
  - Drug hypersensitivity [Unknown]
  - Injection site discolouration [Unknown]
  - Migraine [Unknown]

NARRATIVE: CASE EVENT DATE: 2020
